FAERS Safety Report 4542816-7 (Version None)
Quarter: 2004Q4

REPORT INFORMATION
  Report Type: 
  Country: None (occurrence: None)
  Receive Date: 20041229
  Receipt Date: 20041217
  Transmission Date: 20050328
  Serious: Yes (Hospitalization)
  Sender: FDA-Public Use
  Company Number: 8008368

PATIENT
  Age: 49 Year
  Sex: Female

DRUGS (1)
  1. KEPPRA [Suspect]
     Indication: CONVULSION
     Dosage: PO
     Route: 048

REACTIONS (7)
  - DUODENAL ULCER [None]
  - GASTRIC ULCER [None]
  - GASTRITIS [None]
  - HAEMORRHAGE [None]
  - INSOMNIA [None]
  - IRON DEFICIENCY ANAEMIA [None]
  - JEJUNAL ULCER [None]
